FAERS Safety Report 15325841 (Version 1)
Quarter: 2018Q3

REPORT INFORMATION
  Report Type: Spontaneous
  Country: US (occurrence: US)
  Receive Date: 20180828
  Receipt Date: 20180828
  Transmission Date: 20181010
  Serious: No
  Sender: FDA-Public Use
  Company Number: US-TEVA-2018-US-949165

PATIENT
  Sex: Female

DRUGS (1)
  1. AIRDUO RESPICLICK [Suspect]
     Active Substance: FLUTICASONE PROPIONATE\SALMETEROL XINAFOATE
     Dosage: INHALATION?POWDER, FLUTICASONE PROPIONATE / SALMETEROL XINOFOATE,113 MCG / 14 MCG
     Route: 065

REACTIONS (2)
  - Drug ineffective [Unknown]
  - Device malfunction [Unknown]
